FAERS Safety Report 23849267 (Version 3)
Quarter: 2024Q2

REPORT INFORMATION
  Report Type: Spontaneous
  Country: RO (occurrence: RO)
  Receive Date: 20240513
  Receipt Date: 20240604
  Transmission Date: 20240715
  Serious: Yes (Death, Life-Threatening, Other)
  Sender: FDA-Public Use
  Company Number: RO-PFIZER INC-PV202400054369

PATIENT
  Age: 63 Year
  Sex: Female

DRUGS (13)
  1. LETROZOLE [Suspect]
     Active Substance: LETROZOLE
     Indication: Metastasis
     Dosage: 2.5 MILLIGRAM, QD
     Route: 065
     Dates: start: 201808, end: 201905
  2. LETROZOLE [Suspect]
     Active Substance: LETROZOLE
     Dosage: 2.5 MILLIGRAM, QD
     Route: 065
     Dates: start: 201808, end: 202203
  3. LETROZOLE [Suspect]
     Active Substance: LETROZOLE
     Dosage: 2.5 MILLIGRAM, QD
     Route: 065
     Dates: start: 202206
  4. FULVESTRANT [Suspect]
     Active Substance: FULVESTRANT
     Indication: Metastasis
     Dosage: UNK
     Route: 065
  5. DOCETAXEL [Suspect]
     Active Substance: DOCETAXEL\DOCETAXEL ANHYDROUS
     Indication: Metastasis
     Dosage: 75 MILLIGRAM/SQ. METER, Q3W
     Route: 065
     Dates: start: 201802, end: 201808
  6. ZOLEDRONIC ACID [Suspect]
     Active Substance: ZOLEDRONIC ACID
     Indication: Metastasis
     Dosage: 4 MILLIGRAM, CYCLE, EVERY 3-4 WEEKS
     Route: 065
     Dates: start: 20180130
  7. PALBOCICLIB [Suspect]
     Active Substance: PALBOCICLIB
     Indication: Metastasis
     Dosage: 125 MILLIGRAM, QD (21 DAYS IN A 28 DAY CYCLE)
     Route: 065
     Dates: start: 201808, end: 201905
  8. PALBOCICLIB [Suspect]
     Active Substance: PALBOCICLIB
     Dosage: 100 MILLIGRAM, QD (21 DAYS IN A 28 DAY CYCLE)
     Route: 065
     Dates: start: 201808, end: 202203
  9. PALBOCICLIB [Suspect]
     Active Substance: PALBOCICLIB
     Dosage: 100 MILLIGRAM, CYCLE, 21 DAYS ON A 28 DAY CYCLE
     Route: 065
     Dates: start: 201905, end: 202206
  10. PALBOCICLIB [Suspect]
     Active Substance: PALBOCICLIB
     Dosage: UNK, QD
     Route: 065
     Dates: start: 202206
  11. PACLITAXEL [Suspect]
     Active Substance: PACLITAXEL
     Indication: Breast cancer
     Dosage: 90 MILLIGRAM/SQ. METER, Q28D (90 MG/M2 DAY 1,8,15, Q4W)
     Route: 065
  12. PEGFILGRASTIM [Suspect]
     Active Substance: PEGFILGRASTIM
     Indication: Prophylaxis
     Dosage: UNK
     Route: 065
  13. ALPELISIB [Suspect]
     Active Substance: ALPELISIB
     Indication: Metastasis
     Dosage: UNK
     Route: 065

REACTIONS (7)
  - Death [Fatal]
  - Febrile neutropenia [Unknown]
  - Neuropathy peripheral [Unknown]
  - Neutropenia [Recovered/Resolved]
  - Thrombocytopenia [Recovered/Resolved]
  - Neoplasm progression [Unknown]
  - Disease progression [Unknown]

NARRATIVE: CASE EVENT DATE: 20220301
